FAERS Safety Report 25009774 (Version 1)
Quarter: 2025Q1

REPORT INFORMATION
  Report Type: Report from Study
  Country: US (occurrence: US)
  Receive Date: 20250225
  Receipt Date: 20250225
  Transmission Date: 20250408
  Serious: Yes (Death)
  Sender: BAYER HEALTHCARE PHARMACEUTICALS INC.
  Company Number: US-BAYER-2025A026308

PATIENT
  Age: 78 Year
  Sex: Male

DRUGS (1)
  1. STIVARGA [Suspect]
     Active Substance: REGORAFENIB MONOHYDRATE
     Dosage: 160 MG, QD
     Route: 048
     Dates: start: 20240828

REACTIONS (1)
  - Death [Fatal]
